FAERS Safety Report 7355936-9 (Version None)
Quarter: 2011Q1

REPORT INFORMATION
  Report Type: 
  Country: None (occurrence: None)
  Receive Date: 20110307
  Receipt Date: 20110222
  Transmission Date: 20110831
  Serious: Yes (Hospitalization)
  Sender: FDA-Public Use
  Company Number: 2011EK000006

PATIENT
  Age: 8 Year
  Sex: Male

DRUGS (27)
  1. FAMOTIDINE [Concomitant]
  2. FENTANYL [Concomitant]
  3. PRILOCAINE HYDROCHLORIDE [Concomitant]
  4. VANCOMYCIN [Concomitant]
  5. CARDENE [Suspect]
     Indication: HYPERTENSION
     Dosage: 1 UG/KG;UNK;IV
     Route: 042
  6. METHOTREXATE [Concomitant]
  7. DOXORUBICIN HCL [Concomitant]
  8. DIPHENHYDRAMINE HYDROCHLORIDE [Concomitant]
  9. VECURONIUM BROMIDE [Concomitant]
  10. MESNA [Concomitant]
  11. CYTARABINE [Concomitant]
  12. VINCRISTINE SULFATE [Concomitant]
  13. BACITACIN [Concomitant]
  14. FLUCONAZOLE [Concomitant]
  15. HEPARIN SODIUM [Concomitant]
  16. AMLODIPINE [Suspect]
     Indication: HYPERTENSION
     Dosage: 5 MG;QD;NGT
  17. MORPHINE SULFATE [Concomitant]
  18. ONDANSETRON [Concomitant]
  19. SULFAMETHOXAZOLE AND TRIMETHOPRIM [Concomitant]
  20. DEXAMETHASONE [Concomitant]
  21. LIDOCAINE [Concomitant]
  22. TPN ELECTROLYTES IN PLASTIC CONTAINER [Concomitant]
  23. CYCLOPHOSPHAMIDE [Concomitant]
  24. LEUCIVORIN [Concomitant]
  25. CEFEPIME [Concomitant]
  26. MIDAZOLAM [Concomitant]
  27. THIAMINE HYDROCHLORIDE [Concomitant]

REACTIONS (1)
  - ANGIOEDEMA [None]
